FAERS Safety Report 11929599 (Version 1)
Quarter: 2016Q1

REPORT INFORMATION
  Report Type: Spontaneous
  Country: US (occurrence: US)
  Receive Date: 20160120
  Receipt Date: 20160120
  Transmission Date: 20160526
  Serious: No
  Sender: FDA-Public Use
  Company Number: US-TEVA-625435ACC

PATIENT
  Age: 26 Year
  Sex: Female
  Weight: 54.48 kg

DRUGS (1)
  1. PARAGARD T 380A [Suspect]
     Active Substance: COPPER
     Indication: CONTRACEPTION
     Dates: start: 20141120, end: 20150723

REACTIONS (3)
  - Amenorrhoea [Not Recovered/Not Resolved]
  - Hypomenorrhoea [Recovered/Resolved]
  - Acne [Unknown]

NARRATIVE: CASE EVENT DATE: 201508
